FAERS Safety Report 5324098-1 (Version None)
Quarter: 2007Q2

REPORT INFORMATION
  Report Type: 
  Country: None (occurrence: None)
  Receive Date: 20070514
  Receipt Date: 20060419
  Transmission Date: 20071010
  Serious: No
  Sender: FDA-Public Use
  Company Number: A0602464A

PATIENT
  Age: 72 Year
  Sex: Male

DRUGS (3)
  1. NABUMETONE [Suspect]
     Indication: OSTEOARTHRITIS
     Dosage: 500MGML TWICE PER DAY
     Route: 048
     Dates: start: 20051001, end: 20051001
  2. ATENOLOL [Concomitant]
  3. DIOVAN [Concomitant]

REACTIONS (1)
  - GASTROINTESTINAL DISORDER [None]
